FAERS Safety Report 6674895-5 (Version None)
Quarter: 2010Q2

REPORT INFORMATION
  Report Type: 
  Country: None (occurrence: None)
  Receive Date: 20100409
  Receipt Date: 20100331
  Transmission Date: 20101027
  Serious: Yes (Hospitalization)
  Sender: FDA-Public Use
  Company Number: CA-JNJFOC-20100400754

PATIENT
  Sex: Male
  Weight: 59 kg

DRUGS (13)
  1. REMICADE [Suspect]
     Indication: RHEUMATOID ARTHRITIS
     Route: 042
  2. METOPROLOL TARTRATE [Concomitant]
  3. PREDNISONE TAB [Concomitant]
  4. FERROUS SULFATE TAB [Concomitant]
  5. ASPIRIN [Concomitant]
  6. OMEPRAZOLE [Concomitant]
  7. CALCIUM [Concomitant]
  8. ACTONEL [Concomitant]
  9. VITAMIN D [Concomitant]
  10. VITAMIN C [Concomitant]
  11. OXAZEPAM [Concomitant]
  12. MINITRANS [Concomitant]
  13. FUROSEMIDE [Concomitant]

REACTIONS (5)
  - EXCORIATION [None]
  - FALL [None]
  - PULSE ABSENT [None]
  - RED BLOOD CELL COUNT DECREASED [None]
  - WHITE BLOOD CELL COUNT DECREASED [None]
